FAERS Safety Report 11064460 (Version 7)
Quarter: 2016Q1

REPORT INFORMATION
  Report Type: Spontaneous
  Country: US (occurrence: US)
  Receive Date: 20150424
  Receipt Date: 20160112
  Transmission Date: 20160525
  Serious: Yes (Other)
  Sender: FDA-Public Use
  Company Number: US-PFIZER INC-2015131505

PATIENT
  Age: 66 Year
  Sex: Male
  Weight: 99.77 kg

DRUGS (12)
  1. AMLODIPINE [Concomitant]
     Active Substance: AMLODIPINE BESYLATE
     Dosage: UNK
  2. SUTENT [Suspect]
     Active Substance: SUNITINIB MALATE
     Dosage: 50 MG, 2 WEEKS ON /1 WEEK OFF
     Dates: start: 20150316
  3. VALSARTAN. [Concomitant]
     Active Substance: VALSARTAN
     Dosage: UNK
  4. OMEPRAZOLE. [Concomitant]
     Active Substance: OMEPRAZOLE
     Dosage: UNK
  5. VITAMIN D [Concomitant]
     Active Substance: CHOLECALCIFEROL
     Dosage: UNK
  6. KLONOPIN [Concomitant]
     Active Substance: CLONAZEPAM
     Dosage: UNK, AS NEEDED
  7. CLONIDINE. [Concomitant]
     Active Substance: CLONIDINE
     Dosage: UNK
  8. NORVASC [Concomitant]
     Active Substance: AMLODIPINE BESYLATE
     Dosage: UNK
  9. SYNTHROID [Concomitant]
     Active Substance: LEVOTHYROXINE SODIUM
     Dosage: UNK
  10. SUTENT [Suspect]
     Active Substance: SUNITINIB MALATE
     Indication: RENAL CANCER STAGE IV
     Dosage: 25 MG, 28 DAYS ON / 14 DAYS OFF
     Dates: start: 20150316, end: 2015
  11. PREDNISONE. [Concomitant]
     Active Substance: PREDNISONE
     Dosage: 5 MG, DAILY CONTINOUS
  12. HYDROCHLOROTHIAZIDE. [Concomitant]
     Active Substance: HYDROCHLOROTHIAZIDE
     Dosage: UNK

REACTIONS (16)
  - Disease progression [Unknown]
  - Abdominal pain [Not Recovered/Not Resolved]
  - Gastrooesophageal reflux disease [Unknown]
  - Vomiting [Unknown]
  - Oral candidiasis [Unknown]
  - Hair colour changes [Recovered/Resolved]
  - Diarrhoea [Unknown]
  - Skin discolouration [Recovered/Resolved]
  - Hypertension [Not Recovered/Not Resolved]
  - Dysgeusia [Recovering/Resolving]
  - Musculoskeletal pain [Unknown]
  - Blood test abnormal [Unknown]
  - Nausea [Unknown]
  - Renal cancer stage IV [Unknown]
  - Myalgia [Unknown]
  - Chloasma [Recovered/Resolved]

NARRATIVE: CASE EVENT DATE: 2015
